FAERS Safety Report 12140076 (Version 2)
Quarter: 2016Q2

REPORT INFORMATION
  Report Type: Report from Study
  Country: US (occurrence: US)
  Receive Date: 20160303
  Receipt Date: 20160517
  Transmission Date: 20160815
  Serious: Yes (Death)
  Sender: FDA-Public Use
  Company Number: US-TAIHO ONCOLOGY INC-EU-2016-00335

PATIENT
  Age: 78 Year
  Sex: Female

DRUGS (6)
  1. XANAX [Concomitant]
     Active Substance: ALPRAZOLAM
     Dosage: NI
  2. COMPAZINE [Concomitant]
     Active Substance: PROCHLORPERAZINE MALEATE
     Dosage: NI
  3. OXYCODONE [Concomitant]
     Active Substance: OXYCODONE
     Dosage: NI
  4. NYSTATIN. [Concomitant]
     Active Substance: NYSTATIN
     Dosage: NI
  5. LONSURF [Suspect]
     Active Substance: TIPIRACIL HYDROCHLORIDE\TRIFLURIDINE
     Indication: COLON CANCER STAGE IV
     Dosage: DOSING REGIMEN UNKNOWN
     Route: 048
     Dates: start: 20151228
  6. DURAGESIC [Concomitant]
     Active Substance: FENTANYL
     Dosage: NI

REACTIONS (1)
  - Apnoea [Fatal]

NARRATIVE: CASE EVENT DATE: 20160215
